FAERS Safety Report 7579824-8 (Version None)
Quarter: 2011Q2

REPORT INFORMATION
  Report Type: 
  Country: None (occurrence: None)
  Receive Date: 20110629
  Receipt Date: 20110616
  Transmission Date: 20111010
  Serious: Yes (Other)
  Sender: FDA-Public Use
  Company Number: CA-JNJFOC-20110609101

PATIENT
  Sex: Female
  Weight: 61.4 kg

DRUGS (12)
  1. FOLIC ACID [Concomitant]
  2. REMICADE [Suspect]
     Indication: RHEUMATOID ARTHRITIS
     Route: 042
     Dates: start: 20110616
  3. REMICADE [Suspect]
     Route: 042
     Dates: start: 20051101, end: 20110201
  4. METHOTREXATE [Concomitant]
  5. OGEN [Concomitant]
  6. DIOVAN [Concomitant]
  7. TYLENOL-500 [Concomitant]
     Indication: PREMEDICATION
     Route: 048
     Dates: start: 20110616
  8. PLAQUENIL [Concomitant]
  9. SINEQUAN [Concomitant]
  10. DESLORATADINE [Concomitant]
     Indication: PREMEDICATION
     Route: 048
     Dates: start: 20110616
  11. FERROUS SULFATE TAB [Concomitant]
  12. RENEDIL [Concomitant]

REACTIONS (5)
  - THROAT IRRITATION [None]
  - FLUSHING [None]
  - INFUSION RELATED REACTION [None]
  - PLEURAL DISORDER [None]
  - CARDIAC DISORDER [None]
